FAERS Safety Report 23150098 (Version 2)
Quarter: 2023Q4

REPORT INFORMATION
  Report Type: Report from Study
  Country: US (occurrence: US)
  Receive Date: 20231106
  Receipt Date: 20231108
  Transmission Date: 20240109
  Serious: Yes (Death, Life-Threatening, Hospitalization)
  Sender: FDA-Public Use
  Company Number: US-MORPHOSYS US-2023-MOR004689-US

PATIENT
  Age: 78 Year
  Sex: Female
  Weight: 77.823 kg

DRUGS (31)
  1. MONJUVI [Suspect]
     Active Substance: TAFASITAMAB-CXIX
     Indication: Diffuse large B-cell lymphoma
     Dosage: 12 MILLIGRAM/KILOGRAM ON D1, D15, D28 AND 800 MG IV ON D1, D15, D28 ON 27-JUL-2023
     Route: 042
     Dates: start: 20211207
  2. MONJUVI [Suspect]
     Active Substance: TAFASITAMAB-CXIX
     Dosage: 800 MG IV ON D1, D15, D28
     Route: 042
  3. MONJUVI [Suspect]
     Active Substance: TAFASITAMAB-CXIX
     Dosage: UNK
     Route: 065
     Dates: start: 20220202
  4. LENALIDOMIDE [Suspect]
     Active Substance: LENALIDOMIDE
     Indication: Diffuse large B-cell lymphoma
     Dosage: 10 MILLIGRAM, QD 21 DAYS, 7 OFF
     Route: 048
     Dates: start: 20220808, end: 20220906
  5. BUMETANIDE [Concomitant]
     Active Substance: BUMETANIDE
     Indication: Chronic kidney disease
     Dosage: 1 MILLIGRAM, QD
     Route: 048
     Dates: start: 20210119, end: 20231023
  6. COLESTIPOL [Concomitant]
     Active Substance: COLESTIPOL
     Indication: Diarrhoea
     Dosage: 1 GRAM, QD
     Route: 065
     Dates: start: 20210621, end: 20231023
  7. COLLAGEN [Concomitant]
     Active Substance: COLLAGEN
     Indication: Skin infection
     Dosage: 250 UNIT/GRAM CREAM BID
     Route: 061
  8. ERGOCALCIFEROL [Concomitant]
     Active Substance: ERGOCALCIFEROL
     Indication: Product used for unknown indication
     Dosage: 1250 MICROGRAM
     Route: 065
  9. ACETAMINOPHEN\HYDROCODONE [Concomitant]
     Active Substance: ACETAMINOPHEN\HYDROCODONE
     Indication: Arthritis
     Dosage: 10-325 MG, PRN
     Route: 048
     Dates: start: 20210208, end: 20231023
  10. LEVOFLOXACIN [Concomitant]
     Active Substance: LEVOFLOXACIN
     Indication: Skin infection
     Dosage: 500 MILLIGRAM, BID
     Route: 042
     Dates: start: 20230220, end: 20231023
  11. METOPROLOL SUCCINATE [Concomitant]
     Active Substance: METOPROLOL SUCCINATE
     Indication: Cardiac failure
     Dosage: 25 MILLIGRAM, BID
     Route: 048
     Dates: start: 20220310, end: 20231023
  12. MONTELUKAST [Concomitant]
     Active Substance: MONTELUKAST SODIUM
     Indication: Asthma
     Dosage: 10 MILLIGRAM, QD
     Route: 048
     Dates: start: 20210406, end: 20231023
  13. OMEPRAZOLE [Concomitant]
     Active Substance: OMEPRAZOLE
     Indication: Gastrooesophageal reflux disease
     Dosage: 40 MILLIGRAM, QD
     Route: 048
     Dates: start: 20210323, end: 20231023
  14. ONDANSETRON HYDROCHLORIDE [Concomitant]
     Active Substance: ONDANSETRON HYDROCHLORIDE
     Indication: Nausea
     Dosage: 8 MILLIGRAM, PRN
     Route: 048
     Dates: start: 20210208, end: 20231023
  15. POTASSIUM CHLORIDE [Concomitant]
     Active Substance: POTASSIUM CHLORIDE
     Indication: Chronic kidney disease
     Dosage: 20 MILLIEQUIVALENT, BID
     Route: 048
     Dates: start: 20211103, end: 20231023
  16. PRAMIPEXOLE [Concomitant]
     Active Substance: PRAMIPEXOLE
     Indication: Extrapyramidal disorder
     Dosage: 0.5 MILLIGRAM, TID
     Route: 065
     Dates: start: 20230804, end: 20231023
  17. PROMETHAZINE [Concomitant]
     Active Substance: PROMETHAZINE HYDROCHLORIDE
     Indication: Nausea
     Dosage: 25 MILLIGRAM, PRN
     Route: 048
     Dates: start: 20210208, end: 20231023
  18. PROVENTIL HFA [Concomitant]
     Active Substance: ALBUTEROL SULFATE
     Indication: Asthma
     Dosage: 90 MCG/ACTUATION, PRN
     Route: 065
     Dates: start: 20211103, end: 20231023
  19. MAGNESIUM CHLORIDE [Concomitant]
     Active Substance: MAGNESIUM CHLORIDE
     Indication: Constipation
     Dosage: 71.5 MILLIGRAM, QD
     Route: 048
     Dates: start: 20210208, end: 20231023
  20. SPIRONOLACTONE [Concomitant]
     Active Substance: SPIRONOLACTONE
     Indication: Cardiac failure congestive
     Dosage: 25 MILLIGRAM, BID
     Route: 048
     Dates: start: 20230804, end: 20231023
  21. TRAMADOL [Concomitant]
     Active Substance: TRAMADOL\TRAMADOL HYDROCHLORIDE
     Indication: Pain
     Dosage: 50 MILLIGRAM
     Route: 065
     Dates: start: 20210119, end: 20231023
  22. TRAZODONE [Concomitant]
     Active Substance: TRAZODONE HYDROCHLORIDE
     Indication: Depression
     Dosage: 50 MILLIGRAM
     Route: 048
     Dates: start: 20210119, end: 20231023
  23. TRELEGY ELLIPTA [Concomitant]
     Active Substance: FLUTICASONE FUROATE\UMECLIDINIUM BROMIDE\VILANTEROL TRIFENATATE
     Indication: Asthma
     Dosage: 100-62.5-25 MCG, QD SPRAY
     Dates: start: 20220630, end: 20231023
  24. VITAMIN D2 [Concomitant]
     Active Substance: ERGOCALCIFEROL
     Indication: Hypocalcaemia
     Dosage: 1250 MICROGRAM, EVERY WEEK
     Route: 048
     Dates: start: 20210810, end: 20231023
  25. MEROPENEM [Concomitant]
     Active Substance: MEROPENEM
     Indication: Skin infection
     Dosage: 1 GRAM, TID
     Route: 042
     Dates: start: 202303, end: 20230801
  26. DAPTOMYCIN [Concomitant]
     Active Substance: DAPTOMYCIN
     Indication: Skin infection
     Dosage: 500 MILLIGRAM, QD
     Route: 065
     Dates: start: 20230220, end: 20230801
  27. COLLAGENASE [Concomitant]
     Active Substance: COLLAGENASE CLOSTRIDIUM HISTOLYTICUM
     Indication: Skin infection
     Dosage: 250 UNIT/GRAM, BID
     Route: 061
     Dates: start: 20220906, end: 20231023
  28. ROPINIROLE [Concomitant]
     Active Substance: ROPINIROLE
     Indication: Extrapyramidal disorder
     Dosage: 2 MILLIGRAM, QD
     Route: 048
     Dates: start: 20210119, end: 20230803
  29. ASCORBIC ACID [Concomitant]
     Active Substance: ASCORBIC ACID
     Indication: Vitamin supplementation
     Dosage: 1000 MILLIGRAM, QD
     Route: 048
     Dates: start: 20220215
  30. ZINC SULFATE [Concomitant]
     Active Substance: ZINC SULFATE
     Indication: Vitamin supplementation
     Dosage: 220 MILLIGRAM, QD
     Route: 048
     Dates: start: 20220215
  31. BUMEX [Concomitant]
     Active Substance: BUMETANIDE
     Indication: Cardiac failure congestive
     Dosage: 1 MILLIGRAM, QD
     Route: 048
     Dates: start: 20220608

REACTIONS (5)
  - Cardio-respiratory arrest [Fatal]
  - Sepsis [Recovered/Resolved with Sequelae]
  - Dehydration [Recovered/Resolved]
  - Fall [Recovered/Resolved]
  - Anaemia [Not Recovered/Not Resolved]

NARRATIVE: CASE EVENT DATE: 20230801
